FAERS Safety Report 12931026 (Version 1)
Quarter: 2016Q4

REPORT INFORMATION
  Report Type: Spontaneous
  Country: US (occurrence: US)
  Receive Date: 20161110
  Receipt Date: 20161110
  Transmission Date: 20170207
  Serious: No
  Sender: FDA-Public Use
  Company Number: US-JAZZ-2016-US-017713

PATIENT
  Sex: Male

DRUGS (31)
  1. XYREM [Suspect]
     Active Substance: SODIUM OXYBATE
     Dosage: 3 G, THIRD DOSE
     Route: 048
     Dates: start: 200911
  2. DICLOFENAC SODIUM. [Concomitant]
     Active Substance: DICLOFENAC SODIUM
  3. MULTIVITAMINS [Concomitant]
     Active Substance: VITAMINS
  4. MAGNESIUM CALCIUM [Concomitant]
  5. XYREM [Suspect]
     Active Substance: SODIUM OXYBATE
     Indication: NARCOLEPSY
     Dosage: 3 G, BID
     Route: 048
     Dates: start: 200907, end: 200908
  6. MELOXICAM. [Concomitant]
     Active Substance: MELOXICAM
  7. ARGININE L-ASPARTATE [Concomitant]
  8. RITALIN [Concomitant]
     Active Substance: METHYLPHENIDATE HYDROCHLORIDE
  9. RED YEAST RICE [Concomitant]
     Active Substance: DIETARY SUPPLEMENT
  10. ZINC [Concomitant]
     Active Substance: ZINC\ZINC CHLORIDE
  11. METHYLPHENIDATE. [Concomitant]
     Active Substance: METHYLPHENIDATE
  12. ORENCIA [Concomitant]
     Active Substance: ABATACEPT
  13. FISH OIL CONCENTRATE [Concomitant]
     Active Substance: FISH OIL
  14. DOXEPIN [Concomitant]
     Active Substance: DOXEPIN
  15. XYREM [Suspect]
     Active Substance: SODIUM OXYBATE
     Dosage: 4.5 G, BID
     Route: 048
     Dates: start: 200908, end: 200911
  16. PREDNISONE. [Concomitant]
     Active Substance: PREDNISONE
  17. AMOXICILLIN. [Concomitant]
     Active Substance: AMOXICILLIN
  18. DIAZEPAM. [Concomitant]
     Active Substance: DIAZEPAM
  19. CARISOPRODOL. [Concomitant]
     Active Substance: CARISOPRODOL
  20. CYCLOBENZAPRINE [Concomitant]
     Active Substance: CYCLOBENZAPRINE
  21. LISINOPRIL. [Concomitant]
     Active Substance: LISINOPRIL
  22. PROVIGIL [Concomitant]
     Active Substance: MODAFINIL
  23. COENZYME Q10 [Concomitant]
     Active Substance: UBIDECARENONE
  24. KRILL OIL [Concomitant]
     Active Substance: DIETARY SUPPLEMENT
  25. RITALIN SR [Concomitant]
     Active Substance: METHYLPHENIDATE HYDROCHLORIDE
  26. XYREM [Suspect]
     Active Substance: SODIUM OXYBATE
     Dosage: 4 G, FIRST DOSE
     Route: 048
     Dates: start: 200911
  27. XYREM [Suspect]
     Active Substance: SODIUM OXYBATE
     Dosage: 3 G, SECOND DOSE
     Route: 048
     Dates: start: 200911
  28. IBUPROFEN. [Concomitant]
     Active Substance: IBUPROFEN
  29. CONCERTA [Concomitant]
     Active Substance: METHYLPHENIDATE HYDROCHLORIDE
  30. LYRICA [Concomitant]
     Active Substance: PREGABALIN
  31. PREGNENOLONE [Concomitant]
     Active Substance: PREGNENOLONE

REACTIONS (2)
  - Tooth extraction [Unknown]
  - Back disorder [Unknown]
